FAERS Safety Report 15760125 (Version 1)
Quarter: 2018Q4

REPORT INFORMATION
  Report Type: Report from Study
  Country: BR (occurrence: BR)
  Receive Date: 20181226
  Receipt Date: 20181226
  Transmission Date: 20190205
  Serious: Yes (Other)
  Sender: FDA-Public Use
  Company Number: PHHY2018BR073984

PATIENT
  Sex: Female
  Weight: 78 kg

DRUGS (3)
  1. COSENTYX [Suspect]
     Active Substance: SECUKINUMAB
     Dosage: 300 UNK, UNK
     Route: 058
  2. TRAMOL [Concomitant]
     Indication: PRODUCT USED FOR UNKNOWN INDICATION
     Dosage: 3 YEARS
     Route: 065
  3. COSENTYX [Suspect]
     Active Substance: SECUKINUMAB
     Indication: PSORIATIC ARTHROPATHY
     Dosage: 150 MG, QMO
     Route: 058
     Dates: start: 20180315

REACTIONS (17)
  - Pain [Not Recovered/Not Resolved]
  - Muscular weakness [Not Recovered/Not Resolved]
  - Disturbance in attention [Unknown]
  - Peripheral swelling [Not Recovered/Not Resolved]
  - Psoriasis [Recovering/Resolving]
  - Irritability [Unknown]
  - Mobility decreased [Not Recovered/Not Resolved]
  - Weight decreased [Unknown]
  - Macule [Not Recovered/Not Resolved]
  - Wound [Recovered/Resolved]
  - Fall [Not Recovered/Not Resolved]
  - Dysuria [Unknown]
  - Pain in extremity [Not Recovered/Not Resolved]
  - Gait inability [Not Recovered/Not Resolved]
  - Ligament sprain [Unknown]
  - Agitation [Unknown]
  - Incorrect dose administered [Unknown]
